FAERS Safety Report 21776885 (Version 2)
Quarter: 2023Q4

REPORT INFORMATION
  Report Type: Spontaneous
  Country: US (occurrence: US)
  Receive Date: 20221226
  Receipt Date: 20231101
  Transmission Date: 20240110
  Serious: No
  Sender: FDA-Public Use
  Company Number: US-LEO Pharma-347970

PATIENT
  Age: 55 Year
  Sex: Female

DRUGS (2)
  1. ADBRY [Suspect]
     Active Substance: TRALOKINUMAB-LDRM
     Indication: Product used for unknown indication
     Dosage: DOSAGE : 4 INJECTIONS FOR THE INITIAL DOSE
     Route: 058
     Dates: start: 202205
  2. ADBRY [Suspect]
     Active Substance: TRALOKINUMAB-LDRM
     Indication: Product used for unknown indication
     Dosage: 2 INJECTIONS
     Route: 058
     Dates: start: 202205

REACTIONS (1)
  - Drug ineffective [Unknown]
